FAERS Safety Report 20983741 (Version 1)
Quarter: 2022Q2

REPORT INFORMATION
  Report Type: Spontaneous
  Country: CA (occurrence: CA)
  Receive Date: 20220620
  Receipt Date: 20220620
  Transmission Date: 20220720
  Serious: Yes (Death, Hospitalization, Other)
  Sender: FDA-Public Use
  Company Number: CA-JNJFOC-20220635226

PATIENT
  Age: 72 Year
  Sex: Male
  Weight: 95 kg

DRUGS (3)
  1. REMICADE [Suspect]
     Active Substance: INFLIXIMAB
     Indication: Crohn^s disease
     Route: 041
  2. DOXYCYCLINE [Concomitant]
     Active Substance: DOXYCYCLINE
     Indication: Product used for unknown indication
     Route: 047
  3. PREDNISONE [Concomitant]
     Active Substance: PREDNISONE
     Indication: Product used for unknown indication
     Route: 048

REACTIONS (13)
  - Biliary obstruction [Fatal]
  - Death [Fatal]
  - Body temperature decreased [Fatal]
  - Constipation [Fatal]
  - Cough [Fatal]
  - Dry eye [Fatal]
  - Nasopharyngitis [Fatal]
  - Pleural effusion [Fatal]
  - Rhinorrhoea [Fatal]
  - Weight increased [Fatal]
  - Off label use [Fatal]
  - Intentional product use issue [Fatal]
  - Product container issue [Unknown]
